FAERS Safety Report 6389411-5 (Version None)
Quarter: 2009Q4

REPORT INFORMATION
  Report Type: 
  Country: None (occurrence: None)
  Receive Date: 20091006
  Receipt Date: 20071205
  Transmission Date: 20100525
  Serious: Yes (Other)
  Sender: FDA-Public Use
  Company Number: US-ASTRAZENECA-2006UW23291

PATIENT
  Age: 50 Year
  Sex: Female
  Weight: 88.9 kg

DRUGS (18)
  1. SEROQUEL [Suspect]
     Indication: SCHIZOPHRENIA
     Route: 048
     Dates: start: 19960101
  2. SEROQUEL [Suspect]
     Indication: BIPOLAR DISORDER
     Route: 048
     Dates: start: 19960101
  3. SEROQUEL [Suspect]
     Indication: DEPRESSION
     Route: 048
     Dates: start: 19960101
  4. SEROQUEL [Suspect]
     Route: 048
     Dates: start: 19980101
  5. SEROQUEL [Suspect]
     Route: 048
     Dates: start: 19980101
  6. SEROQUEL [Suspect]
     Route: 048
     Dates: start: 19980101
  7. SEROQUEL [Suspect]
     Dosage: 25MG -75MG
     Route: 048
     Dates: start: 20030903
  8. SEROQUEL [Suspect]
     Dosage: 25MG -75MG
     Route: 048
     Dates: start: 20030903
  9. SEROQUEL [Suspect]
     Dosage: 25MG -75MG
     Route: 048
     Dates: start: 20030903
  10. PAXIL [Concomitant]
     Dosage: 20MG -50MG
     Route: 048
     Dates: start: 19941016
  11. TRAZODONE [Concomitant]
     Dosage: 50MG-150MG
     Route: 048
     Dates: start: 19941016
  12. LISINOPRIL [Concomitant]
     Route: 048
     Dates: start: 20040323
  13. CLONIDINE [Concomitant]
     Dosage: 0.1MG -0.2MG
     Route: 048
     Dates: start: 20040323
  14. VICODIN [Concomitant]
     Route: 048
     Dates: start: 20031106
  15. OXYCONTIN [Concomitant]
     Dosage: 20MG-40MG
     Route: 048
     Dates: start: 20031106
  16. COLACE [Concomitant]
     Route: 048
     Dates: start: 20031106
  17. ATIVAN [Concomitant]
     Dosage: 0.5MG - 2MG
     Route: 048
     Dates: start: 20040908
  18. HALDOL [Concomitant]
     Dosage: 2MG -5MG
     Route: 048
     Dates: start: 20070101

REACTIONS (4)
  - DIABETES MELLITUS [None]
  - DIABETIC FOOT [None]
  - TYPE 1 DIABETES MELLITUS [None]
  - TYPE 2 DIABETES MELLITUS [None]
